FAERS Safety Report 4476245-1 (Version None)
Quarter: 2004Q3

REPORT INFORMATION
  Report Type: 
  Country: None (occurrence: None)
  Receive Date: 20040923
  Receipt Date: 20040728
  Transmission Date: 20050211
  Serious: No
  Sender: FDA-Public Use
  Company Number: USA040773899

PATIENT
  Age: 72 Year
  Sex: Female
  Weight: 82 kg

DRUGS (1)
  1. FORTEO [Suspect]
     Indication: OSTEOPOROSIS
     Dosage: 20 UG 1 DAY
     Dates: start: 20040527, end: 20040721

REACTIONS (5)
  - BACK DISORDER [None]
  - BACK PAIN [None]
  - HYPOTONIA [None]
  - MUSCLE FATIGUE [None]
  - MUSCULAR WEAKNESS [None]
